FAERS Safety Report 5150289-9 (Version None)
Quarter: 2006Q4

REPORT INFORMATION
  Report Type: 
  Country: None (occurrence: None)
  Receive Date: 20061110
  Receipt Date: 20061110
  Transmission Date: 20070319
  Serious: Yes (Other)
  Sender: FDA-Public Use
  Company Number: None

PATIENT
  Age: 30 Year
  Sex: Female
  Weight: 87.0906 kg

DRUGS (4)
  1. ACETAMINOPHEN [Suspect]
     Indication: ABDOMINAL PAIN UPPER
     Dosage: 2  EVERY 4 HOURS  PO
     Route: 048
     Dates: start: 20060926, end: 20060927
  2. ACETAMINOPHEN [Suspect]
     Indication: HEADACHE
     Dosage: 2  EVERY 4 HOURS  PO
     Route: 048
     Dates: start: 20060926, end: 20060927
  3. ACETAMINOPHEN [Suspect]
     Indication: ABDOMINAL PAIN UPPER
     Dosage: 2  EVERY 4 HOURS  PO
     Route: 048
     Dates: start: 20061009, end: 20061010
  4. ACETAMINOPHEN [Suspect]
     Indication: HEADACHE
     Dosage: 2  EVERY 4 HOURS  PO
     Route: 048
     Dates: start: 20061009, end: 20061010

REACTIONS (5)
  - ABDOMINAL PAIN UPPER [None]
  - HYPERSENSITIVITY [None]
  - MOUTH ULCERATION [None]
  - PHARMACEUTICAL PRODUCT COMPLAINT [None]
  - POOR QUALITY DRUG ADMINISTERED [None]
